FAERS Safety Report 8624384-3 (Version None)
Quarter: 2012Q3

REPORT INFORMATION
  Report Type: 
  Country: None (occurrence: None)
  Receive Date: 20120827
  Receipt Date: 20120822
  Transmission Date: 20120928
  Serious: Yes (Hospitalization, Other)
  Sender: FDA-Public Use
  Company Number: US-PFIZER INC-2012207118

PATIENT
  Age: 38 Year
  Sex: Male
  Weight: 98.413 kg

DRUGS (9)
  1. DILANTIN [Suspect]
     Indication: CONVULSION
     Dosage: UNK
  2. LYRICA [Suspect]
     Indication: CONVULSION
     Dosage: 300 MG, 3X/DAY
     Route: 048
  3. LYRICA [Suspect]
     Dosage: 100 MG, 3X/DAY
     Route: 048
     Dates: start: 20120601
  4. IBUPROFEN [Suspect]
     Indication: HEADACHE
     Dosage: 4000 MG IN A DAY
  5. MORPHINE [Concomitant]
     Dosage: UNK
  6. LYRICA [Suspect]
     Dosage: 300 MG, 2X/DAY
     Route: 048
     Dates: end: 20120601
  7. HYDROCODONE [Concomitant]
     Dosage: UNK
  8. LAMICTAL [Concomitant]
     Dosage: UNK
  9. BUTALBITAL [Concomitant]
     Dosage: UNK

REACTIONS (16)
  - WEIGHT DECREASED [None]
  - PAIN [None]
  - WEIGHT INCREASED [None]
  - MUSCULOSKELETAL STIFFNESS [None]
  - NERVOUS SYSTEM DISORDER [None]
  - SWELLING [None]
  - FATIGUE [None]
  - FEELING ABNORMAL [None]
  - ASTHENIA [None]
  - MALAISE [None]
  - HEADACHE [None]
  - MYALGIA [None]
  - HEPATIC FAILURE [None]
  - DEPRESSION [None]
  - OVERDOSE [None]
  - SOMNOLENCE [None]
